FAERS Safety Report 9512425 (Version 1)
Quarter: 2013Q1

REPORT INFORMATION
  Report Type: Spontaneous
  Country: US (occurrence: None)
  Receive Date: 20130305
  Receipt Date: 20130305
  Transmission Date: 20140127
  Serious: Yes (Other)
  Sender: FDA-Public Use
  Company Number: 163-21880-12051322

PATIENT
  Age: 60 Year
  Sex: Male

DRUGS (2)
  1. REVLIMID [Suspect]
     Indication: PLASMA CELL MYELOMA
     Dosage: 10 MG, 1 IN 1 D, PO
     Route: 048
     Dates: start: 20120114
  2. DECADRON [Concomitant]

REACTIONS (9)
  - Drug dose omission [None]
  - Rash [None]
  - Diarrhoea [None]
  - Local swelling [None]
  - Pruritus [None]
  - Fatigue [None]
  - Pruritus [None]
  - Gastrooesophageal reflux disease [None]
  - Chest discomfort [None]
